FAERS Safety Report 9212853 (Version 1)
Quarter: 2013Q1

REPORT INFORMATION
  Report Type: Spontaneous
  Country: US (occurrence: None)
  Receive Date: 20120824
  Receipt Date: 20120824
  Transmission Date: 20140127
  Serious: Yes (Hospitalization, Other)
  Sender: FDA-Public Use
  Company Number: A-US2011-51973

PATIENT
  Age: 38 Year
  Sex: Female

DRUGS (3)
  1. VELETRI [Suspect]
     Indication: PULMONARY ARTERIAL HYPERTENSION
     Dosage: 6 NG/MG, PER MIN, INTRAVENOUS
     Route: 042
     Dates: start: 20110114
  2. COUMADIN (WARFARIN) [Concomitant]
  3. REVATIO (SILDENAFIL CITRATE) (UNKNOWN) (SILDENAFIL) [Concomitant]

REACTIONS (4)
  - Pulmonary arterial hypertension [None]
  - Nausea [None]
  - Vomiting [None]
  - Diarrhoea [None]
